FAERS Safety Report 9516709 (Version 1)
Quarter: 2013Q3

REPORT INFORMATION
  Report Type: Spontaneous
  Country: CH (occurrence: CH)
  Receive Date: 20130911
  Receipt Date: 20130911
  Transmission Date: 20140515
  Serious: Yes (Other)
  Sender: FDA-Public Use
  Company Number: CH-ROCHE-1271470

PATIENT
  Sex: Male

DRUGS (2)
  1. LUCENTIS [Suspect]
     Indication: MACULAR CYST
     Route: 050
  2. VIGAMOX [Concomitant]
     Route: 065

REACTIONS (9)
  - Cerebrovascular accident [Recovered/Resolved]
  - Eye inflammation [Recovered/Resolved]
  - Visual acuity reduced [Recovered/Resolved]
  - Vitritis [Recovered/Resolved]
  - Corneal striae [Recovered/Resolved]
  - Panic reaction [Recovered/Resolved]
  - Eye pain [Recovered/Resolved]
  - Anaemia [Recovered/Resolved]
  - Anxiety [Recovered/Resolved]
